FAERS Safety Report 7122203-8 (Version None)
Quarter: 2010Q4

REPORT INFORMATION
  Report Type: 
  Country: None (occurrence: None)
  Receive Date: 20101124
  Receipt Date: 20101111
  Transmission Date: 20110411
  Serious: Yes (Death)
  Sender: FDA-Public Use
  Company Number: GXKR2010CH12767

PATIENT
  Age: 59 Year
  Sex: Male

DRUGS (7)
  1. METFIN (NGX) [Suspect]
     Dosage: 1000 MG, BID
     Route: 048
  2. ASPIRIN [Concomitant]
     Dosage: 100 MG, QD
     Route: 048
  3. COTENOLOL [Concomitant]
     Dosage: ONCE A DAY
     Route: 048
  4. OLMETEC [Concomitant]
     Dosage: 40 MG, QD
     Route: 048
  5. ATORVASTATIN CALCIUM [Concomitant]
     Dosage: 40 MG, QD
     Route: 048
  6. NOVORAPID [Concomitant]
     Dosage: AS NECESSARY
     Route: 058
  7. LEVEMIR [Concomitant]
     Dosage: AS NECESSARY (40 E)
     Route: 058

REACTIONS (12)
  - ANURIA [None]
  - CARDIOVASCULAR DISORDER [None]
  - CHOLECYSTITIS [None]
  - DIARRHOEA [None]
  - GASTROENTERITIS [None]
  - HAEMODIALYSIS [None]
  - LACTIC ACIDOSIS [None]
  - MULTI-ORGAN FAILURE [None]
  - PANCREATITIS [None]
  - RENAL FAILURE [None]
  - SEPSIS [None]
  - VOMITING [None]
